FAERS Safety Report 16668396 (Version 1)
Quarter: 2019Q3

REPORT INFORMATION
  Report Type: Spontaneous
  Country: US (occurrence: US)
  Receive Date: 20190619
  Receipt Date: 20190619
  Transmission Date: 20191004
  Serious: No
  Sender: FDA-Public Use
  Company Number: None

PATIENT
  Age: 80 Year
  Sex: Female
  Weight: 87.54 kg

DRUGS (9)
  1. LEVOXYL [Concomitant]
     Active Substance: LEVOTHYROXINE SODIUM
  2. SYSTANE EYEDROPS [Concomitant]
     Active Substance: POLYETHYLENE GLYCOL 400\PROPYLENE GLYCOL
  3. ATENOLOL. [Concomitant]
     Active Substance: ATENOLOL
  4. AREDS2 VITAMIN [Concomitant]
  5. METAMUCIL [Concomitant]
     Active Substance: PLANTAGO SEED
  6. QUETIAPINE FUMARATE 50MG [Suspect]
     Active Substance: QUETIAPINE FUMARATE
     Indication: INSOMNIA
     Dosage: ?          QUANTITY:1 DF DOSAGE FORM;OTHER FREQUENCY:AT NIGHT;?
     Route: 048
     Dates: start: 20190503, end: 20190503
  7. ASPIRIN. [Concomitant]
     Active Substance: ASPIRIN
  8. SPIRONOLACTONE. [Concomitant]
     Active Substance: SPIRONOLACTONE
  9. VITAMIN C-D [Concomitant]

REACTIONS (2)
  - Feeling abnormal [None]
  - Nervous system disorder [None]

NARRATIVE: CASE EVENT DATE: 20190503
